FAERS Safety Report 13711397 (Version 4)
Quarter: 2019Q1

REPORT INFORMATION
  Report Type: Report from Study
  Country: US (occurrence: US)
  Receive Date: 20170703
  Receipt Date: 20190129
  Transmission Date: 20190417
  Serious: Yes (Other)
  Sender: FDA-Public Use
  Company Number: PHHY2017US043125

PATIENT
  Age: 34 Year
  Sex: Female
  Weight: 57.6 kg

DRUGS (8)
  1. FLEXERIL [Concomitant]
     Active Substance: CYCLOBENZAPRINE HYDROCHLORIDE
     Indication: MUSCLE SPASMS
     Dosage: 20 MG, UNK
     Route: 048
     Dates: start: 20150709, end: 201702
  2. TYLENOL [Concomitant]
     Active Substance: ACETAMINOPHEN
     Indication: PAIN
     Dosage: UNK
     Route: 048
     Dates: start: 20151207
  3. GILENYA [Suspect]
     Active Substance: FINGOLIMOD HYDROCHLORIDE
     Indication: MULTIPLE SCLEROSIS
     Dosage: 0.5 MG, QD
     Route: 048
     Dates: start: 20160318
  4. PERCOCET [Concomitant]
     Active Substance: ACETAMINOPHEN\OXYCODONE HYDROCHLORIDE
     Indication: BACK PAIN
     Dosage: UNK UNK, PRN
     Route: 048
     Dates: start: 20150709, end: 201702
  5. MOBIC [Concomitant]
     Active Substance: MELOXICAM
     Indication: BACK PAIN
     Dosage: 7.5 MG, UNK
     Route: 048
     Dates: start: 20150709, end: 201702
  6. COLECALCIFEROL [Concomitant]
     Active Substance: CHOLECALCIFEROL
     Indication: PRODUCT USED FOR UNKNOWN INDICATION
     Dosage: UNK UNK, PRN
     Route: 048
     Dates: end: 201702
  7. NEURONTIN [Concomitant]
     Active Substance: GABAPENTIN
     Indication: BACK PAIN
     Dosage: 1800 MG, UNK
     Route: 048
     Dates: start: 20150709, end: 201702
  8. IMITREX [Concomitant]
     Active Substance: SUMATRIPTAN SUCCINATE
     Indication: MIGRAINE
     Dosage: UNK UNK, PRN
     Route: 058

REACTIONS (23)
  - Lymphocyte count increased [Unknown]
  - Acne [Unknown]
  - Mycobacterium tuberculosis complex test positive [Unknown]
  - Pneumonia [Unknown]
  - Disorientation [Unknown]
  - Psychogenic seizure [Recovered/Resolved]
  - Eye pain [Unknown]
  - Craniocerebral injury [Recovered/Resolved]
  - Confusional state [Recovered/Resolved]
  - Blood glucose increased [Unknown]
  - Anxiety [Recovered/Resolved]
  - Muscle spasms [Recovered/Resolved]
  - Muscular weakness [Not Recovered/Not Resolved]
  - Melanocytic naevus [Unknown]
  - Joint swelling [Unknown]
  - Tremor [Recovered/Resolved]
  - Chest discomfort [Recovered/Resolved]
  - Depression [Not Recovered/Not Resolved]
  - Haemangioma [Unknown]
  - Lentigo [Unknown]
  - Peripheral swelling [Unknown]
  - Visual impairment [Recovered/Resolved]
  - Seborrhoeic keratosis [Unknown]

NARRATIVE: CASE EVENT DATE: 20160319
